FAERS Safety Report 19072151 (Version 1)
Quarter: 2021Q1

REPORT INFORMATION
  Report Type: Spontaneous
  Country: US (occurrence: US)
  Receive Date: 20210330
  Receipt Date: 20210330
  Transmission Date: 20210420
  Serious: Yes (Life-Threatening, Hospitalization, Other)
  Sender: FDA-Public Use
  Company Number: US-ALLERGAN-2112816US

PATIENT
  Sex: Female

DRUGS (11)
  1. HYDRALAZINE [Suspect]
     Active Substance: HYDRALAZINE HYDROCHLORIDE
     Indication: BLOOD PRESSURE MANAGEMENT
     Route: 048
  2. NOREPINEPHRINE. [Suspect]
     Active Substance: NOREPINEPHRINE
     Indication: BLOOD PRESSURE MANAGEMENT
  3. LISINOPRIL. [Suspect]
     Active Substance: LISINOPRIL
     Indication: BLOOD PRESSURE MANAGEMENT
     Route: 048
  4. EPINEPHRINE. [Suspect]
     Active Substance: EPINEPHRINE
     Indication: BLOOD PRESSURE MANAGEMENT
  5. PHENYLEPHRINE [Suspect]
     Active Substance: PHENYLEPHRINE HYDROCHLORIDE
     Indication: BLOOD PRESSURE MANAGEMENT
  6. VERAPAMIL [Suspect]
     Active Substance: VERAPAMIL HYDROCHLORIDE
     Indication: BLOOD PRESSURE MANAGEMENT
     Route: 048
  7. VASOPRESSIN. [Suspect]
     Active Substance: VASOPRESSIN
     Indication: BLOOD PRESSURE MANAGEMENT
  8. HYDROCHLOROTHIAZIDE UNK [Suspect]
     Active Substance: HYDROCHLOROTHIAZIDE
     Indication: BLOOD PRESSURE MANAGEMENT
     Route: 048
  9. NICARDIPINE [Suspect]
     Active Substance: NICARDIPINE
     Indication: BLOOD PRESSURE MANAGEMENT
     Route: 042
  10. HYDRALAZINE [Suspect]
     Active Substance: HYDRALAZINE HYDROCHLORIDE
     Indication: BLOOD PRESSURE MANAGEMENT
     Route: 042
  11. LABETALOL [Suspect]
     Active Substance: LABETALOL\LABETALOL HYDROCHLORIDE
     Indication: BLOOD PRESSURE MANAGEMENT
     Route: 042

REACTIONS (6)
  - Cardiogenic shock [Recovered/Resolved]
  - Hypotension [Recovered/Resolved]
  - Pulmonary oedema [Recovered/Resolved]
  - Nodal arrhythmia [Recovered/Resolved]
  - Cardiac failure [Recovered/Resolved]
  - Acute kidney injury [Recovered/Resolved]
